FAERS Safety Report 17835434 (Version 1)
Quarter: 2020Q2

REPORT INFORMATION
  Report Type: Report from Study
  Country: IE (occurrence: IE)
  Receive Date: 20200528
  Receipt Date: 20200528
  Transmission Date: 20200714
  Serious: Yes (Other)
  Sender: FDA-Public Use
  Company Number: IE-JNJFOC-20200534053

PATIENT
  Sex: Male

DRUGS (6)
  1. HALCION [Concomitant]
     Active Substance: TRIAZOLAM
     Dosage: 250MCG
     Route: 065
  2. SIMPONI [Suspect]
     Active Substance: GOLIMUMAB
     Indication: RHEUMATOID ARTHRITIS
     Route: 058
  3. EZETROL [Concomitant]
     Active Substance: EZETIMIBE
     Route: 065
  4. FORXIGA [Concomitant]
     Active Substance: DAPAGLIFLOZIN
     Route: 065
  5. ASPIRIN                            /00002701/ [Concomitant]
     Active Substance: ASPIRIN
     Route: 065
  6. JANUMET [Concomitant]
     Active Substance: METFORMIN HYDROCHLORIDE\SITAGLIPTIN PHOSPHATE
     Route: 065

REACTIONS (1)
  - Brain neoplasm [Unknown]
